FAERS Safety Report 9814399 (Version 1)
Quarter: 2014Q1

REPORT INFORMATION
  Report Type: Spontaneous
  Country: US (occurrence: US)
  Receive Date: 20140113
  Receipt Date: 20140113
  Transmission Date: 20141002
  Serious: No
  Sender: FDA-Public Use
  Company Number: US-ENDO PHARMACEUTICALS INC.-HCDA20130151

PATIENT
  Age: 50 Year
  Sex: Female

DRUGS (1)
  1. HYDROCODONE BITARTRATE / ACETAMINOPHEN [Suspect]
     Indication: PAIN
     Dosage: UNKNOWN
     Route: 048

REACTIONS (3)
  - Anxiety [Unknown]
  - Withdrawal syndrome [Unknown]
  - Drug effect decreased [Unknown]
